FAERS Safety Report 7916628-8 (Version None)
Quarter: 2011Q4

REPORT INFORMATION
  Report Type: 
  Country: None (occurrence: None)
  Receive Date: 20111114
  Receipt Date: 20111027
  Transmission Date: 20120403
  Serious: Yes (Other)
  Sender: FDA-Public Use
  Company Number: 1000025202

PATIENT
  Age: 30 Year
  Sex: Female

DRUGS (4)
  1. RISPERDAL CONSTA (RISPERIDONE) (RISPERIDONE) [Concomitant]
  2. MILNACIPRAN (MILNACIPRAN HYDROCHLORIDE) (CAPSULES) [Suspect]
     Dosage: 100 MG (50 MG, 2 IN 1 D), ORAL
     Route: 048
  3. RIVOTRIL (CLONAZEPAM) (CLONAZEPAM) [Concomitant]
  4. MILNACIPRAN (MILNACIPRAN HYDROCHLORIDE) (CAPSULES) [Suspect]
     Dosage: 50 MG (25 MG, 2 IN 1 D), ORAL
     Route: 048
     Dates: start: 20110815

REACTIONS (7)
  - AFFECTIVE DISORDER [None]
  - AMNESIA [None]
  - URINARY TRACT DISORDER [None]
  - SUICIDAL IDEATION [None]
  - MUSCLE SPASMS [None]
  - COGNITIVE DISORDER [None]
  - AGGRESSION [None]
